FAERS Safety Report 25093253 (Version 5)
Quarter: 2025Q2

REPORT INFORMATION
  Report Type: Report from Study
  Country: US (occurrence: US)
  Receive Date: 20250319
  Receipt Date: 20250624
  Transmission Date: 20250717
  Serious: Yes (Hospitalization)
  Sender: TAKEDA
  Company Number: US-TAKEDA-2025TUS000825

PATIENT
  Sex: Male
  Weight: 70 kg

DRUGS (2)
  1. FRUQUINTINIB [Suspect]
     Active Substance: FRUQUINTINIB
     Indication: Colon cancer
  2. FRUQUINTINIB [Suspect]
     Active Substance: FRUQUINTINIB

REACTIONS (9)
  - Pain [Unknown]
  - Illness [Unknown]
  - Blood sodium decreased [Unknown]
  - Product use issue [Unknown]
  - Urticaria [Unknown]
  - Pruritus [Unknown]
  - Taste disorder [Unknown]
  - Blood pressure increased [Unknown]
  - Decreased appetite [Unknown]
